FAERS Safety Report 8473640-0 (Version None)
Quarter: 2012Q2

REPORT INFORMATION
  Report Type: 
  Country: None (occurrence: None)
  Receive Date: 20120628
  Receipt Date: 20110727
  Transmission Date: 20120825
  Serious: Yes (Death)
  Sender: FDA-Public Use
  Company Number: US-MYLANLABS-2011S1015636

PATIENT
  Age: 56 Year
  Sex: Female

DRUGS (12)
  1. RANITIDINE [Concomitant]
  2. PREDNISONE TAB [Concomitant]
  3. ASPIRIN [Concomitant]
  4. AMLODIPINE [Concomitant]
  5. TRILEPTAL [Concomitant]
  6. MULTI-VITAMIN [Concomitant]
  7. ATIVAN [Concomitant]
  8. CLOZAPINE [Suspect]
     Route: 048
     Dates: end: 20110401
  9. CLOZAPINE [Suspect]
     Route: 048
     Dates: end: 20110401
  10. ALBUTEROL SULFATE [Concomitant]
     Route: 055
  11. METOPROLOL TARTRATE [Concomitant]
  12. LISINOPRIL [Concomitant]

REACTIONS (1)
  - DEATH [None]
